FAERS Safety Report 9804762 (Version 1)
Quarter: 2014Q1

REPORT INFORMATION
  Report Type: Spontaneous
  Country: US (occurrence: US)
  Receive Date: 20140108
  Receipt Date: 20140108
  Transmission Date: 20141002
  Serious: No
  Sender: FDA-Public Use
  Company Number: US-GILEAD-2014-0091589

PATIENT
  Sex: Female

DRUGS (3)
  1. LETAIRIS [Suspect]
     Indication: PRODUCT USED FOR UNKNOWN INDICATION
     Dosage: 5 MG, QD
     Route: 048
  2. ADCIRCA [Concomitant]
  3. REMODULIN [Concomitant]

REACTIONS (5)
  - Pain [Unknown]
  - Cough [Unknown]
  - Nasal congestion [Unknown]
  - Nasopharyngitis [Unknown]
  - Headache [Unknown]
